FAERS Safety Report 21898702 (Version 2)
Quarter: 2023Q1

REPORT INFORMATION
  Report Type: Other
  Country: CA (occurrence: None)
  Receive Date: 20230123
  Receipt Date: 20230313
  Transmission Date: 20230418
  Serious: Yes (Other)
  Sender: FDA-Public Use
  Company Number: CA-ROCHE-3044735

PATIENT
  Sex: Female

DRUGS (1)
  1. OCREVUS [Suspect]
     Active Substance: OCRELIZUMAB
     Indication: Relapsing-remitting multiple sclerosis
     Dosage: 300 MG AT DAY 0 AND 14 THEN 600 MG EVERY 6 MONTH
     Route: 042
     Dates: start: 20201001

REACTIONS (2)
  - Maternal exposure during pregnancy [Unknown]
  - Sepsis [Unknown]
